FAERS Safety Report 9743163 (Version 2)
Quarter: 2015Q3

REPORT INFORMATION
  Report Type: Spontaneous
  Country: US (occurrence: US)
  Receive Date: 20131210
  Receipt Date: 20150804
  Transmission Date: 20151125
  Serious: No
  Sender: FDA-Public Use
  Company Number: US-GILEAD-2009-0024861

PATIENT
  Age: 53 Year
  Sex: Female

DRUGS (13)
  1. IMURAN [Concomitant]
     Active Substance: AZATHIOPRINE
  2. ZANTAC [Concomitant]
     Active Substance: RANITIDINE HYDROCHLORIDE
  3. ALOE VERA [Concomitant]
     Active Substance: ALOE VERA LEAF
  4. FLAXSEED [Concomitant]
     Active Substance: FLAX SEED
  5. KELP [Concomitant]
     Active Substance: KELP
  6. PREDNISONE. [Concomitant]
     Active Substance: PREDNISONE
  7. NAC [Concomitant]
  8. CALCIUM MAGNESIUM [Concomitant]
     Active Substance: CALCIUM\MAGNESIUM
  9. A-Z MULTIVITAMIN [Concomitant]
  10. LETAIRIS [Suspect]
     Active Substance: AMBRISENTAN
     Indication: PULMONARY ARTERIAL HYPERTENSION
     Route: 048
     Dates: start: 20090610
  11. L-CARNITINE [Concomitant]
     Active Substance: LEVOCARNITINE
  12. LACTOBACILLUS ACIDOPHILUS\LACTOBACILLUS BULGARICUS [Concomitant]
     Active Substance: LACTOBACILLUS ACIDOPHILUS\LACTOBACILLUS DELBRUECKII SUBSP. BULGARICUS
  13. PLAVIX [Concomitant]
     Active Substance: CLOPIDOGREL BISULFATE

REACTIONS (1)
  - Pruritus [Unknown]
